FAERS Safety Report 8593466 (Version 2)
Quarter: 2013Q3

REPORT INFORMATION
  Report Type: Spontaneous
  Country: US (occurrence: US)
  Receive Date: 20120604
  Receipt Date: 20130725
  Transmission Date: 20140515
  Serious: No
  Sender: FDA-Public Use
  Company Number: US-ASTRAZENECA-2012SE34951

PATIENT
  Sex: Female

DRUGS (3)
  1. NEXIUM [Suspect]
     Route: 048
     Dates: start: 20110615
  2. CVS LORATADINE- D [Concomitant]
     Dosage: 24 HR
     Dates: start: 20110718
  3. TRIAM/HCTZ [Concomitant]
     Dosage: 37.5/ 25
     Dates: start: 20110614

REACTIONS (5)
  - Osteoporosis [Unknown]
  - Multiple fractures [Unknown]
  - Arthritis [Unknown]
  - Bone pain [Unknown]
  - Depression [Unknown]
